FAERS Safety Report 9684830 (Version 2)
Quarter: 2013Q4

REPORT INFORMATION
  Report Type: Spontaneous
  Country: US (occurrence: US)
  Receive Date: 20131112
  Receipt Date: 20131112
  Transmission Date: 20140711
  Serious: Yes (Other)
  Sender: FDA-Public Use
  Company Number: US-ROCHE-GNE287669

PATIENT
  Age: 55 Year
  Sex: Female
  Weight: 119.4 kg

DRUGS (18)
  1. XOLAIR [Suspect]
     Indication: ASTHMA
     Route: 058
     Dates: start: 200508, end: 20090424
  2. ADVAIR [Concomitant]
     Indication: ASTHMA
     Route: 055
     Dates: start: 200903
  3. PROVENTIL [Concomitant]
     Indication: ASTHMA
     Dosage: 2 PUFFS
     Route: 055
  4. VERAMYST [Concomitant]
     Indication: RHINITIS
     Dosage: 2 SPRAYS
     Route: 045
     Dates: start: 200801
  5. SYNTHROID [Concomitant]
     Indication: HYPOTHYROIDISM
     Route: 048
     Dates: start: 2005
  6. CARDIZEM [Concomitant]
     Indication: HYPERTENSION
     Route: 048
     Dates: start: 200903
  7. ESTROPIPATE [Concomitant]
     Indication: POSTMENOPAUSE
     Route: 048
  8. PROMETRIUM [Concomitant]
     Indication: POSTMENOPAUSE
     Route: 048
     Dates: start: 20080103
  9. ALBUTEROL/ALBUTEROL SULFATE/IPRATROPIUM BROMIDE [Concomitant]
     Indication: ASTHMA
     Route: 055
     Dates: start: 1994
  10. ASMANEX [Concomitant]
     Indication: ASTHMA
     Route: 065
     Dates: start: 20080327
  11. DEPLIN [Concomitant]
     Indication: FOLATE DEFICIENCY
     Route: 048
  12. SINGULAIR [Concomitant]
     Indication: ASTHMA
     Route: 048
  13. NUVIGIL [Concomitant]
     Indication: ASTHENIA
     Route: 048
     Dates: start: 20100115
  14. ALVESCO [Concomitant]
     Indication: ASTHMA
     Route: 065
  15. FORADIL [Concomitant]
     Indication: ASTHMA
     Route: 065
  16. VITAMIN D3 [Concomitant]
     Indication: ASTHMA
     Route: 048
  17. ALPHA LIPOIC ACID [Concomitant]
     Indication: VITAMIN SUPPLEMENTATION
     Route: 048
  18. MIRAPEX [Concomitant]
     Indication: RESTLESS LEGS SYNDROME
     Route: 048

REACTIONS (9)
  - Hypersensitivity [Recovered/Resolved]
  - Sensation of foreign body [Unknown]
  - Anxiety [Unknown]
  - Palpitations [Unknown]
  - Throat tightness [Unknown]
  - Flushing [Unknown]
  - Dyspnoea [Unknown]
  - Blood pressure increased [Unknown]
  - Headache [Unknown]
